FAERS Safety Report 7693028-X (Version None)
Quarter: 2011Q3

REPORT INFORMATION
  Report Type: 
  Country: None (occurrence: None)
  Receive Date: 20110815
  Receipt Date: 20110801
  Transmission Date: 20111222
  Serious: Yes (Death, Hospitalization)
  Sender: FDA-Public Use
  Company Number: WAES 0903NLD00012

PATIENT
  Age: 73 Year
  Sex: Male

DRUGS (10)
  1. CAP VORINOSTAT [Suspect]
     Indication: PRODUCT USED FOR UNKNOWN INDICATION
     Dosage: 300 MG/BID, PO
     Route: 048
     Dates: start: 20080711, end: 20090316
  2. NUTRIDRINK [Concomitant]
  3. BUPRENORPHINE HCL [Concomitant]
  4. PREDNISONE [Concomitant]
  5. MG OXIDE [Concomitant]
  6. NEXIUM [Concomitant]
  7. RITALIN [Concomitant]
  8. ACENOCOUMAROL [Concomitant]
  9. VERAPAMIL [Concomitant]
  10. HALDOL [Concomitant]

REACTIONS (6)
  - PLEURAL MESOTHELIOMA MALIGNANT [None]
  - ASTHENIA [None]
  - GENERAL PHYSICAL HEALTH DETERIORATION [None]
  - PNEUMONIA [None]
  - DISEASE PROGRESSION [None]
  - CACHEXIA [None]
